FAERS Safety Report 16449977 (Version 1)
Quarter: 2019Q2

REPORT INFORMATION
  Report Type: Report from Study
  Country: GB (occurrence: GB)
  Receive Date: 20190619
  Receipt Date: 20190619
  Transmission Date: 20190711
  Serious: Yes (Hospitalization)
  Sender: FDA-Public Use
  Company Number: GB-ROCHE-2335190

PATIENT
  Sex: Male

DRUGS (2)
  1. ROACTEMRA [Suspect]
     Active Substance: TOCILIZUMAB
     Indication: RHEUMATOID ARTHRITIS
     Route: 058
     Dates: start: 20190220
  2. METHOTREXATE. [Concomitant]
     Active Substance: METHOTREXATE

REACTIONS (9)
  - Rash [Unknown]
  - Gait disturbance [Unknown]
  - Mobility decreased [Unknown]
  - Joint injury [Unknown]
  - Peripheral swelling [Unknown]
  - Rheumatoid arthritis [Unknown]
  - Pain [Unknown]
  - Pruritus [Unknown]
  - Wrist deformity [Unknown]
